FAERS Safety Report 15114764 (Version 2)
Quarter: 2018Q3

REPORT INFORMATION
  Report Type: Report from Study
  Country: US (occurrence: US)
  Receive Date: 20180706
  Receipt Date: 20180815
  Transmission Date: 20181010
  Serious: Yes (Hospitalization)
  Sender: FDA-Public Use
  Company Number: US-ROCHE-2148302

PATIENT
  Age: 69 Year
  Sex: Female
  Weight: 96.97 kg

DRUGS (7)
  1. LISINOPRIL. [Concomitant]
     Active Substance: LISINOPRIL
     Indication: HYPERTENSION
     Route: 065
  2. FOCUS FACTOR [Concomitant]
     Dosage: 1 DAILY
     Route: 065
     Dates: start: 2017
  3. VEMURAFENIB. [Suspect]
     Active Substance: VEMURAFENIB
     Indication: OVARIAN CANCER
     Dosage: EACH 28?DAY CYCLE (AS PER PROTOCOL), DATE OF MOST RECENT DOSE: 24/JUN/2018
     Route: 048
     Dates: start: 20180308
  4. VITAMIN B COMPLEX [Concomitant]
     Active Substance: CYANOCOBALAMIN\DEXPANTHENOL\NIACINAMIDE\PYRIDOXINE HYDROCHLORIDE\RIBOFLAVIN 5^-PHOSPHATE SODIUM\THIAMINE HYDROCHLORIDE\VITAMIN B COMPLEX
     Indication: PROPHYLAXIS
  5. COLACE [Concomitant]
     Active Substance: DOCUSATE SODIUM
     Indication: CONSTIPATION
     Route: 065
  6. COREG [Concomitant]
     Active Substance: CARVEDILOL
  7. COBIMETINIB. [Suspect]
     Active Substance: COBIMETINIB
     Indication: OVARIAN CANCER
     Dosage: FOR 21 DAYS ON AND 7 DAYS OFF IN EACH 28?DAY CYCLE,  DATE OF MOST RECENT DOSE: 19/JUN/2018 (20 MG)
     Route: 048
     Dates: start: 20180308

REACTIONS (1)
  - Cardiac failure [Recovered/Resolved]

NARRATIVE: CASE EVENT DATE: 20180627
